FAERS Safety Report 8525660-5 (Version None)
Quarter: 2012Q3

REPORT INFORMATION
  Report Type: 
  Country: None (occurrence: None)
  Receive Date: 20120710
  Receipt Date: 20120625
  Transmission Date: 20120928
  Serious: Yes (Other)
  Sender: FDA-Public Use
  Company Number: 2012P1045976

PATIENT
  Age: 73 Year
  Sex: Female
  Weight: 54 kg

DRUGS (13)
  1. HORMONES [Concomitant]
  2. THIOPENTAL SODIUM [Concomitant]
  3. ROCURONIUM BROMIDE [Concomitant]
  4. GLYCOPYRROLATE [Concomitant]
  5. MIDAZOLAM [Concomitant]
  6. 50% NITROUS OXIDE [Concomitant]
  7. FENTANYL CITRATE [Suspect]
     Indication: NEPHRECTOMY
     Dosage: 50 UG;XL;ED, 11 UG/H; ;ED
  8. ATRACURIUM BESYLATE [Concomitant]
  9. SYNTHETIC THYROID [Concomitant]
  10. 2% LIDOCAINE WITH EPINEPHRINE 1:200,000 [Concomitant]
  11. 4-6% DESFLURANE [Concomitant]
  12. 50% OXYGEN [Concomitant]
  13. ROPIVACAINE HYDROCHLORIDE [Concomitant]

REACTIONS (3)
  - NYSTAGMUS [None]
  - DIZZINESS [None]
  - NAUSEA [None]
